FAERS Safety Report 25843723 (Version 1)
Quarter: 2025Q3

REPORT INFORMATION
  Report Type: Spontaneous
  Country: RS (occurrence: RS)
  Receive Date: 20250924
  Receipt Date: 20250924
  Transmission Date: 20251020
  Serious: Yes (Other)
  Sender: AMGEN
  Company Number: RS-AMGEN-SRBSP2025184854

PATIENT

DRUGS (2)
  1. ADALIMUMAB [Suspect]
     Active Substance: ADALIMUMAB
     Indication: Colitis ulcerative
     Route: 065
  2. ADALIMUMAB [Suspect]
     Active Substance: ADALIMUMAB
     Indication: Crohn^s disease

REACTIONS (6)
  - Colitis ulcerative [Unknown]
  - Crohn^s disease [Unknown]
  - Treatment failure [Unknown]
  - Therapy non-responder [Unknown]
  - Anaphylactic reaction [Unknown]
  - Psoriasis [Unknown]
